FAERS Safety Report 5335486-1 (Version None)
Quarter: 2007Q2

REPORT INFORMATION
  Report Type: 
  Country: None (occurrence: None)
  Receive Date: 20070525
  Receipt Date: 20070515
  Transmission Date: 20071010
  Serious: Yes (Other)
  Sender: FDA-Public Use
  Company Number: US-PFIZER INC-2007040445

PATIENT
  Age: 58 Year
  Sex: Male
  Weight: 90.909 kg

DRUGS (12)
  1. CHANTIX [Suspect]
     Indication: SMOKING CESSATION THERAPY
  2. AVANDIA [Concomitant]
     Indication: DIABETES MELLITUS
  3. GLUCOTROL [Concomitant]
     Indication: DIABETES MELLITUS
  4. HYDROCHLOROTHIAZIDE [Concomitant]
     Indication: HYPERTENSION
  5. PRINIVIL [Concomitant]
     Indication: HYPERTENSION
  6. NEURONTIN [Concomitant]
  7. COMBIVENT [Concomitant]
     Indication: ASTHMA
  8. ADVAIR DISKUS 100/50 [Concomitant]
     Indication: ASTHMA
  9. NEXIUM [Concomitant]
  10. CELEBREX [Concomitant]
  11. LIPITOR [Concomitant]
  12. ACETYLSALICYLIC ACID SRT [Concomitant]

REACTIONS (2)
  - DYSPHONIA [None]
  - LACK OF SPONTANEOUS SPEECH [None]
